FAERS Safety Report 5203917-3 (Version None)
Quarter: 2006Q4

REPORT INFORMATION
  Report Type: 
  Country: None (occurrence: None)
  Receive Date: 20061016
  Receipt Date: 20060608
  Transmission Date: 20070319
  Serious: Yes (Other)
  Sender: FDA-Public Use
  Company Number: 2006073850

PATIENT
  Age: 60 Year
  Sex: Male
  Weight: 86.1834 kg

DRUGS (6)
  1. NEURONTIN [Suspect]
     Indication: HEADACHE
     Dosage: 400 MG (2 IN 1 D) ORAL
     Route: 048
     Dates: start: 20000101
  2. PRILOSEC [Concomitant]
  3. ASPIRIN [Concomitant]
  4. GLUCOSAMINE W/CHONDROITIN SULFATES (ASCORBIC ACID, CHONDORITIN SULFATE [Concomitant]
  5. MOBIC [Concomitant]
  6. TOPROL-XL [Concomitant]

REACTIONS (4)
  - ANXIETY [None]
  - FEELING HOT [None]
  - HEADACHE [None]
  - HYPERTENSION [None]
